FAERS Safety Report 7508965-6 (Version None)
Quarter: 2011Q2

REPORT INFORMATION
  Report Type: 
  Country: None (occurrence: None)
  Receive Date: 20110527
  Receipt Date: 20110523
  Transmission Date: 20111010
  Serious: Yes (Other)
  Sender: FDA-Public Use
  Company Number: US-PFIZER INC-2010110280

PATIENT
  Sex: Female

DRUGS (3)
  1. LEVOXYL [Concomitant]
     Indication: THYROID DISORDER
     Dosage: UNK
     Dates: start: 20030101, end: 20100101
  2. CHANTIX [Suspect]
     Indication: SMOKING CESSATION THERAPY
     Dosage: UNK
     Dates: start: 20081101, end: 20090301
  3. CHANTIX [Suspect]
     Dosage: UNK
     Dates: start: 20100501, end: 20100601

REACTIONS (9)
  - AMNESIA [None]
  - SUICIDAL BEHAVIOUR [None]
  - DEPRESSION [None]
  - MOOD SWINGS [None]
  - PARANOIA [None]
  - ANXIETY [None]
  - ABNORMAL DREAMS [None]
  - AGGRESSION [None]
  - LOSS OF CONSCIOUSNESS [None]
